FAERS Safety Report 22843954 (Version 3)
Quarter: 2023Q4

REPORT INFORMATION
  Report Type: Spontaneous
  Country: US (occurrence: US)
  Receive Date: 20230821
  Receipt Date: 20231113
  Transmission Date: 20240109
  Serious: No
  Sender: FDA-Public Use
  Company Number: US-PFIZER INC-202300272979

PATIENT
  Age: 29 Year
  Sex: Female

DRUGS (2)
  1. DEPO-PROVERA [Suspect]
     Active Substance: MEDROXYPROGESTERONE ACETATE
     Indication: Contraception
     Dosage: UNK (STRENGTH: 104MG/0.65ML)
  2. DEPO-PROVERA [Suspect]
     Active Substance: MEDROXYPROGESTERONE ACETATE
     Dosage: 0.65 ML (EVERY 34 DAYS)
     Route: 058
     Dates: start: 20230518

REACTIONS (2)
  - Device issue [Unknown]
  - Product administration error [Unknown]
